FAERS Safety Report 15521935 (Version 2)
Quarter: 2020Q2

REPORT INFORMATION
  Report Type: Report from Study
  Country: US (occurrence: US)
  Receive Date: 20181017
  Receipt Date: 20200626
  Transmission Date: 20200713
  Serious: Yes (Other)
  Sender: FDA-Public Use
  Company Number: US-AMGEN-USASL2018115664

PATIENT
  Age: 76 Year
  Sex: Male

DRUGS (6)
  1. REPATHA [Suspect]
     Active Substance: EVOLOCUMAB
     Indication: HYPERCHOLESTEROLAEMIA
  2. ZOSTAVAX [Concomitant]
     Active Substance: VARICELLA-ZOSTER VIRUS STRAIN OKA/MERCK LIVE ANTIGEN
     Indication: PRURITUS
     Dosage: UNK
     Dates: start: 2018
  3. REPATHA [Suspect]
     Active Substance: EVOLOCUMAB
     Indication: HYPERLIPIDAEMIA
     Dosage: 140 MG, Q2WK
     Route: 065
     Dates: start: 201806, end: 202003
  4. REPATHA [Suspect]
     Active Substance: EVOLOCUMAB
     Indication: BLOOD CHOLESTEROL INCREASED
  5. REPATHA [Suspect]
     Active Substance: EVOLOCUMAB
     Indication: CARDIOVASCULAR DISORDER
  6. TESTOSTERONE. [Concomitant]
     Active Substance: TESTOSTERONE
     Dosage: UNK

REACTIONS (14)
  - Rash erythematous [Unknown]
  - Groin pain [Unknown]
  - Back pain [Recovered/Resolved]
  - Diabetes mellitus [Unknown]
  - Prostate cancer [Recovering/Resolving]
  - Pain in extremity [Unknown]
  - Sleep disorder due to a general medical condition [Unknown]
  - Arthralgia [Unknown]
  - Blister [Recovered/Resolved]
  - Malignant melanoma [Recovering/Resolving]
  - Photosensitivity reaction [Unknown]
  - Asthenia [Unknown]
  - Stress [Unknown]
  - Low density lipoprotein decreased [Unknown]

NARRATIVE: CASE EVENT DATE: 2018
